FAERS Safety Report 21112144 (Version 1)
Quarter: 2022Q3

REPORT INFORMATION
  Report Type: Spontaneous
  Country: US (occurrence: None)
  Receive Date: 20220721
  Receipt Date: 20220721
  Transmission Date: 20221027
  Serious: Yes (Other)
  Sender: FDA-Public Use
  Company Number: None

PATIENT
  Age: 64 Year
  Sex: Male
  Weight: 85.95 kg

DRUGS (8)
  1. FARXIGA [Suspect]
     Active Substance: DAPAGLIFLOZIN PROPANEDIOL
     Indication: Type 2 diabetes mellitus
     Dosage: OTHER QUANTITY : 1 TABLET(S);?
     Route: 048
     Dates: start: 20220710
  2. IRBESARTAN [Concomitant]
     Active Substance: IRBESARTAN
  3. ATORVASTATIN [Concomitant]
     Active Substance: ATORVASTATIN
  4. POTASSIUM CITRATE [Concomitant]
     Active Substance: POTASSIUM CITRATE
  5. MILKWEED [Concomitant]
  6. FISH OIL [Concomitant]
     Active Substance: FISH OIL
  7. MAGNESIUM CHLORIDE [Concomitant]
     Active Substance: MAGNESIUM CHLORIDE
  8. COMPLETE B VITAMIN [Concomitant]
     Dates: start: 20220710

REACTIONS (1)
  - Influenza like illness [None]

NARRATIVE: CASE EVENT DATE: 20220718
